FAERS Safety Report 9058348 (Version 1)
Quarter: 2013Q1

REPORT INFORMATION
  Report Type: Spontaneous
  Country: US (occurrence: None)
  Receive Date: 20130205
  Receipt Date: 20130205
  Transmission Date: 20140127
  Serious: Yes (Other)
  Sender: FDA-Public Use
  Company Number: None

PATIENT
  Age: 60 Year
  Sex: Female
  Weight: 74.84 kg

DRUGS (2)
  1. FLUOXETINE [Suspect]
     Indication: DEPRESSION
     Route: 048
     Dates: start: 20121224, end: 20130123
  2. FLUOXETINE [Concomitant]

REACTIONS (5)
  - Abnormal dreams [None]
  - Hallucination [None]
  - Negative thoughts [None]
  - Mood altered [None]
  - Suicidal ideation [None]
